FAERS Safety Report 7230623-6 (Version None)
Quarter: 2011Q1

REPORT INFORMATION
  Report Type: 
  Country: None (occurrence: None)
  Receive Date: 20110117
  Receipt Date: 20110105
  Transmission Date: 20110831
  Serious: Yes (Hospitalization)
  Sender: FDA-Public Use
  Company Number: US-ELI_LILLY_AND_COMPANY-US201011003168

PATIENT
  Sex: Female

DRUGS (18)
  1. CITRACAL [Concomitant]
     Dosage: 600 OR 700, DAILY (1/D)
  2. AGGRENOX [Concomitant]
     Dosage: UNK, 2/D
  3. VITAMIN D [Concomitant]
     Dosage: 1000 D/F, UNKNOWN
  4. FORTEO [Suspect]
     Dosage: 20 UG, DAILY (1/D)
  5. LASIX [Concomitant]
     Dosage: 10 MG, QOD
  6. DIOVAN [Concomitant]
     Dosage: 320 MG, UNK
  7. MAGNESIUM [Concomitant]
     Dosage: 400 MG, DAILY (1/D)
  8. ZOCOR [Concomitant]
     Dosage: 10 MG, EACH EVENING
  9. FLEXERIL [Concomitant]
     Indication: NECK PAIN
     Dosage: UNK, AS NEEDED
  10. Q10 [Concomitant]
     Dosage: UNK, UNKNOWN
  11. FORTEO [Suspect]
     Dosage: 20 UG, DAILY (1/D)
  12. MULTI-VITAMIN [Concomitant]
     Dosage: UNK, UNKNOWN
  13. PROPRAL [Concomitant]
     Dosage: 50 MG, UNK
  14. VITAMIN B COMPLEX CAP [Concomitant]
     Dosage: 25 MG, DAILY (1/D)
  15. BIOTENE [Concomitant]
     Indication: HAIR DISORDER
     Dosage: 1000 D/F, DAILY (1/D)
  16. FORTEO [Suspect]
     Indication: OSTEOPOROSIS
     Dosage: 20 UG, DAILY (1/D)
     Dates: end: 20100620
  17. TOPROL-XL [Concomitant]
     Dosage: 50 MG, DAILY (1/D)
  18. LOVAZA [Concomitant]
     Dosage: 1000 MG, DAILY (1/D)

REACTIONS (12)
  - PAIN IN JAW [None]
  - NECK PAIN [None]
  - MUSCULOSKELETAL PAIN [None]
  - LIMB DISCOMFORT [None]
  - BONE PAIN [None]
  - ARTHRALGIA [None]
  - BACK PAIN [None]
  - PAIN [None]
  - PULSE ABNORMAL [None]
  - MALAISE [None]
  - FEELING ABNORMAL [None]
  - HEADACHE [None]
